FAERS Safety Report 7528420-7 (Version None)
Quarter: 2011Q2

REPORT INFORMATION
  Report Type: 
  Country: None (occurrence: None)
  Receive Date: 20110607
  Receipt Date: 20110209
  Transmission Date: 20111010
  Serious: No
  Sender: FDA-Public Use
  Company Number: US-ASTRAZENECA-2011SE12748

PATIENT
  Sex: Female

DRUGS (3)
  1. CALCIUM + VITAMIN D [Concomitant]
     Dosage: UNKNOWN
  2. OMEPRAZOLE [Suspect]
     Dosage: ONE DOSAGE FORM TWO TIMES DAILY, ONE TABLET, TWO PER A DAY
     Route: 048
  3. PRILOSEC OTC [Suspect]
     Dosage: ONE DOSAGE FORM TWO TIMES DAILY, ONE TABLET, TWO PER A DAY
     Route: 048

REACTIONS (1)
  - DYSPEPSIA [None]
